FAERS Safety Report 8353029-5 (Version None)
Quarter: 2012Q2

REPORT INFORMATION
  Report Type: 
  Country: None (occurrence: None)
  Receive Date: 20120511
  Receipt Date: 20120508
  Transmission Date: 20120825
  Serious: Yes (Hospitalization, Other)
  Sender: FDA-Public Use
  Company Number: US-BRISTOL-MYERS SQUIBB COMPANY-16484818

PATIENT
  Age: 36 Year
  Sex: Female
  Weight: 68 kg

DRUGS (4)
  1. COUMADIN [Suspect]
     Indication: THROMBOSIS
  2. ALBUTEROL [Concomitant]
     Indication: ASTHMA
  3. CHANTIX [Suspect]
  4. XANAX [Concomitant]
     Indication: ANXIETY

REACTIONS (2)
  - THROMBOSIS [None]
  - POOR PERIPHERAL CIRCULATION [None]
